FAERS Safety Report 22902994 (Version 3)
Quarter: 2023Q4

REPORT INFORMATION
  Report Type: Spontaneous
  Country: JP (occurrence: JP)
  Receive Date: 20230904
  Receipt Date: 20231102
  Transmission Date: 20240110
  Serious: Yes (Other)
  Sender: FDA-Public Use
  Company Number: JP-002147023-NVSJ2023JP013158

PATIENT
  Age: 38 Year
  Sex: Male

DRUGS (5)
  1. VOTRIENT [Suspect]
     Active Substance: PAZOPANIB HYDROCHLORIDE
     Indication: Liposarcoma
     Dosage: UNK
     Route: 048
  2. VOTRIENT [Suspect]
     Active Substance: PAZOPANIB HYDROCHLORIDE
     Indication: Metastases to peritoneum
     Dosage: 800 MG
     Route: 048
     Dates: start: 20210506, end: 202106
  3. VOTRIENT [Suspect]
     Active Substance: PAZOPANIB HYDROCHLORIDE
     Dosage: 400 MG
     Route: 048
     Dates: start: 20230816
  4. OXYGEN [Concomitant]
     Active Substance: OXYGEN
     Indication: Liposarcoma
     Dosage: UNK, 30 TIMES
     Route: 065
  5. OXYGEN [Concomitant]
     Active Substance: OXYGEN
     Indication: Metastases to peritoneum

REACTIONS (4)
  - Pancytopenia [Recovering/Resolving]
  - Blood creatine phosphokinase increased [Not Recovered/Not Resolved]
  - Malaise [Recovering/Resolving]
  - Eosinophil count increased [Unknown]

NARRATIVE: CASE EVENT DATE: 20210101
